FAERS Safety Report 8953493 (Version 2)
Quarter: 2012Q4

REPORT INFORMATION
  Report Type: 
  Country: JP (occurrence: JP)
  Receive Date: 20121206
  Receipt Date: 20121217
  Transmission Date: 20130627
  Serious: Yes (Hospitalization)
  Sender: FDA-Public Use
  Company Number: JP-GLAXOSMITHKLINE-B0846851A

PATIENT
  Age: 82 None
  Sex: Female

DRUGS (6)
  1. LAMICTAL [Suspect]
     Indication: BIPOLAR I DISORDER
     Dosage: 25MG Twice per day
     Route: 048
     Dates: start: 20120921, end: 20121024
  2. TETRAMIDE [Concomitant]
     Indication: BIPOLAR I DISORDER
     Dosage: 10MG Per day
     Route: 048
     Dates: start: 20120913
  3. SERENACE [Concomitant]
     Indication: BIPOLAR I DISORDER
     Dosage: .75MG Twice per day
     Route: 048
     Dates: start: 20120913
  4. LANDSEN [Concomitant]
     Indication: BIPOLAR I DISORDER
     Dosage: .5MG Twice per day
     Route: 048
     Dates: start: 20121101
  5. MEPTIN [Concomitant]
     Route: 055
  6. HOKUNALIN [Concomitant]
     Route: 062

REACTIONS (3)
  - Dermatitis [Recovering/Resolving]
  - Rash [Recovering/Resolving]
  - Sedation [Unknown]
